FAERS Safety Report 24135254 (Version 1)
Quarter: 2024Q3

REPORT INFORMATION
  Report Type: Report from Study
  Country: US (occurrence: US)
  Receive Date: 20240725
  Receipt Date: 20240725
  Transmission Date: 20241016
  Serious: Yes (Hospitalization)
  Sender: EXELIXIS
  Company Number: US-EXELIXIS-CABO-24077499

PATIENT
  Sex: Male

DRUGS (23)
  1. CABOMETYX [Suspect]
     Active Substance: CABOZANTINIB S-MALATE
     Indication: Renal cell carcinoma
     Dosage: 60 MG, QD
     Dates: start: 20240426
  2. CABOMETYX [Suspect]
     Active Substance: CABOZANTINIB S-MALATE
     Dosage: 40 MG, QD
     Dates: start: 20240525, end: 20240618
  3. XALATAN [Concomitant]
     Active Substance: LATANOPROST
  4. FLUOCINONIDE [Concomitant]
     Active Substance: FLUOCINONIDE
     Dosage: UNK
  5. TRIAMCINOLONE [Concomitant]
     Active Substance: TRIAMCINOLONE
     Dosage: UNK
  6. NITROGLYCERIN [Concomitant]
     Active Substance: NITROGLYCERIN
     Dosage: UNK
  7. FLOMAX [Concomitant]
     Active Substance: TAMSULOSIN HYDROCHLORIDE
     Dosage: UNK
  8. TIMOLOL [Concomitant]
     Active Substance: TIMOLOL
     Dosage: UNK
  9. PRED FORTE [Concomitant]
     Active Substance: PREDNISOLONE ACETATE
     Dosage: UNK
  10. UROXATRAL [Concomitant]
     Active Substance: ALFUZOSIN HYDROCHLORIDE
  11. BENZONATATE [Concomitant]
     Active Substance: BENZONATATE
  12. GABAPENTIN [Concomitant]
     Active Substance: GABAPENTIN
     Dosage: UNK
  13. VIAGRA [Concomitant]
     Active Substance: SILDENAFIL CITRATE
  14. PROAIR HFA [Concomitant]
     Active Substance: ALBUTEROL SULFATE
  15. MECLIZINE [Concomitant]
     Active Substance: MECLIZINE HYDROCHLORIDE
  16. METOPROLOL TARTRATE [Concomitant]
     Active Substance: METOPROLOL TARTRATE
  17. NORVASC [Concomitant]
     Active Substance: AMLODIPINE BESYLATE
     Dosage: UNK
  18. COZAAR [Concomitant]
     Active Substance: LOSARTAN POTASSIUM
  19. FAMCICLOVIR [Concomitant]
     Active Substance: FAMCICLOVIR
     Dosage: UNK
  20. PLAVIX [Concomitant]
     Active Substance: CLOPIDOGREL BISULFATE
  21. LIPITOR [Concomitant]
     Active Substance: ATORVASTATIN CALCIUM
     Dosage: UNK
  22. ASPIRIN [Concomitant]
     Active Substance: ASPIRIN
  23. IMODIUM [Concomitant]
     Active Substance: LOPERAMIDE HYDROCHLORIDE
     Dosage: UNK

REACTIONS (7)
  - Multiple organ dysfunction syndrome [Unknown]
  - Diarrhoea [Recovering/Resolving]
  - Rash [Recovering/Resolving]
  - Pain in extremity [Not Recovered/Not Resolved]
  - Skin fissures [Recovered/Resolved]
  - Skin ulcer [Not Recovered/Not Resolved]
  - Dry mouth [Not Recovered/Not Resolved]
